FAERS Safety Report 8091393-5 (Version None)
Quarter: 2012Q1

REPORT INFORMATION
  Report Type: 
  Country: None (occurrence: None)
  Receive Date: 20120129
  Receipt Date: 20111031
  Transmission Date: 20120608
  Serious: No
  Sender: FDA-Public Use
  Company Number: US-ABBOTT-11P-163-0870970-00

PATIENT
  Sex: Female
  Weight: 118.04 kg

DRUGS (4)
  1. TRAZODONE HCL [Concomitant]
     Indication: SLEEP DISORDER
  2. MIRAPEX [Concomitant]
     Indication: RESTLESS LEGS SYNDROME
  3. NAPROXEN [Concomitant]
     Indication: PRODUCT USED FOR UNKNOWN INDICATION
  4. HUMIRA [Suspect]
     Indication: RHEUMATOID ARTHRITIS
     Dosage: ONLY TOOK 2 DOSES
     Route: 058
     Dates: start: 20110701, end: 20110701

REACTIONS (2)
  - ARTHRALGIA [None]
  - OEDEMA PERIPHERAL [None]
